FAERS Safety Report 18836111 (Version 1)
Quarter: 2021Q1

REPORT INFORMATION
  Report Type: Spontaneous
  Country: US (occurrence: US)
  Receive Date: 20210203
  Receipt Date: 20210203
  Transmission Date: 20210419
  Serious: No
  Sender: FDA-Public Use
  Company Number: US-ALLERGAN-2008506US

PATIENT
  Age: 68 Year
  Sex: Female

DRUGS (4)
  1. BOTOX COSMETIC [Suspect]
     Active Substance: ONABOTULINUMTOXINA
     Indication: SKIN WRINKLING
     Dosage: 12 UNITS, SINGLE
     Route: 065
     Dates: start: 20191016, end: 20191016
  2. BOTOX COSMETIC [Suspect]
     Active Substance: ONABOTULINUMTOXINA
     Indication: SKIN WRINKLING
     Dosage: 22 UNITS, SINGLE
     Route: 065
     Dates: start: 20191016, end: 20191016
  3. BOTOX COSMETIC [Suspect]
     Active Substance: ONABOTULINUMTOXINA
     Indication: SKIN WRINKLING
     Dosage: 20 UNITS, SINGLE
     Route: 065
     Dates: start: 20191016, end: 20191016
  4. JUVEDERM VOLBELLA [Suspect]
     Active Substance: HYALURONIC ACID
     Indication: SKIN WRINKLING
     Dosage: UNK, SINGLE
     Dates: start: 20191016, end: 20191016

REACTIONS (6)
  - Patient dissatisfaction with treatment [Unknown]
  - Lip disorder [Unknown]
  - Injection site swelling [Recovering/Resolving]
  - Therapeutic product effect incomplete [Unknown]
  - Off label use [Unknown]
  - Facial asymmetry [Recovering/Resolving]

NARRATIVE: CASE EVENT DATE: 201910
